FAERS Safety Report 8397202 (Version 2)
Quarter: 2014Q1

REPORT INFORMATION
  Report Type: Spontaneous
  Country: US (occurrence: US)
  Receive Date: 20120209
  Receipt Date: 20140131
  Transmission Date: 20141002
  Serious: Yes (Hospitalization)
  Sender: FDA-Public Use
  Company Number: US-JNJFOC-20120200663

PATIENT
  Sex: Male
  Weight: 104.33 kg

DRUGS (5)
  1. DURAGESIC [Suspect]
     Indication: CANCER PAIN
     Route: 062
  2. DURAGESIC [Suspect]
     Indication: CANCER PAIN
     Route: 062
     Dates: start: 2011
  3. KLONOPIN [Concomitant]
     Indication: BLOOD PRESSURE
     Route: 048
  4. KLONOPIN [Concomitant]
     Indication: SLEEP DISORDER
     Route: 048
  5. KLONOPIN [Concomitant]
     Indication: ANXIETY
     Route: 048

REACTIONS (11)
  - Volvulus [Recovered/Resolved]
  - Abdominal hernia [Recovered/Resolved]
  - Small intestine carcinoma [Not Recovered/Not Resolved]
  - Product quality issue [Unknown]
  - Drug ineffective [Recovered/Resolved]
  - Application site reaction [Unknown]
  - Wrong technique in drug usage process [Unknown]
  - Wrong technique in drug usage process [Unknown]
  - Wrong technique in drug usage process [Unknown]
  - Adverse event [Not Recovered/Not Resolved]
  - Product adhesion issue [Unknown]
